FAERS Safety Report 4540342-2 (Version None)
Quarter: 2004Q4

REPORT INFORMATION
  Report Type: 
  Country: None (occurrence: None)
  Receive Date: 20041228
  Receipt Date: 20041228
  Transmission Date: 20050328
  Serious: Yes (Life-Threatening, Hospitalization)
  Sender: FDA-Public Use
  Company Number: None

PATIENT
  Age: 6 Year
  Sex: Female
  Weight: 17.8 kg

DRUGS (6)
  1. IVIG (10% GAMMEX) BAYER [Suspect]
     Indication: KAWASAKI'S DISEASE
     Dosage: 2G/KG
     Dates: start: 20041130
  2. IVIG (10% GAMMEX) BAYER [Suspect]
     Indication: KAWASAKI'S DISEASE
     Dosage: 2G/KG
     Dates: start: 20041203
  3. IVIG (10% GAMMEX) BAYER [Suspect]
  4. IVIG (10% GAMMEY) BAYER [Suspect]
  5. ASPIRIN [Concomitant]
  6. TOBRAMYCIN EYE OINTMENT [Concomitant]

REACTIONS (2)
  - COOMBS POSITIVE HAEMOLYTIC ANAEMIA [None]
  - PYREXIA [None]
